FAERS Safety Report 5259803-6 (Version None)
Quarter: 2007Q1

REPORT INFORMATION
  Report Type: 
  Country: None (occurrence: None)
  Receive Date: 20070309
  Receipt Date: 20070301
  Transmission Date: 20070707
  Serious: Yes (Disabling, Other)
  Sender: FDA-Public Use
  Company Number: 2007UW03754

PATIENT
  Age: 66 Year
  Sex: Female
  Weight: 61 kg

DRUGS (2)
  1. CRESTOR [Suspect]
     Indication: HYPERCHOLESTEROLAEMIA
     Route: 048
     Dates: start: 20070215, end: 20070219
  2. FLUOXETINE [Concomitant]
     Route: 048
     Dates: start: 20050101

REACTIONS (4)
  - COORDINATION ABNORMAL [None]
  - DYSARTHRIA [None]
  - FEELING ABNORMAL [None]
  - SOMNOLENCE [None]
